FAERS Safety Report 4891989-5 (Version None)
Quarter: 2006Q1

REPORT INFORMATION
  Report Type: 
  Country: None (occurrence: None)
  Receive Date: 20060124
  Receipt Date: 20060124
  Transmission Date: 20060701
  Serious: Yes (Hospitalization)
  Sender: FDA-Public Use
  Company Number: None

PATIENT
  Age: 8 Year
  Sex: Male
  Weight: 38.5557 kg

DRUGS (2)
  1. ARIPIPRAZOLE 5 MG [Suspect]
     Indication: AGGRESSION
     Dosage: TWICE A DAY
  2. ARIPIPRAZOLE 5 MG [Suspect]
     Indication: MOOD ALTERED
     Dosage: TWICE A DAY

REACTIONS (2)
  - ACUTE RESPIRATORY DISTRESS SYNDROME [None]
  - PNEUMONIA ASPIRATION [None]
